FAERS Safety Report 6413287-0 (Version None)
Quarter: 2009Q4

REPORT INFORMATION
  Report Type: 
  Country: None (occurrence: None)
  Receive Date: 20091026
  Receipt Date: 20091020
  Transmission Date: 20100525
  Serious: Yes (Death, Hospitalization)
  Sender: FDA-Public Use
  Company Number: KR-ROCHE-644375

PATIENT
  Sex: Male
  Weight: 55.1 kg

DRUGS (12)
  1. CAPECITABINE [Suspect]
     Dosage: LAST DOSE PRIOR TO SAE: 08 SEPTEMBER 2009.
     Route: 048
     Dates: start: 20090525, end: 20090922
  2. GENEXOL [Suspect]
     Dosage: LAST DOSE PRIOR TO SAE: 08 SEPTEMBER 2009.FORM: VIAL
     Route: 042
     Dates: start: 20090525, end: 20090922
  3. DILTIAZEM [Concomitant]
     Dosage: STOP DATE REPORTED AS 23 JULY 2009.
     Dates: start: 20090716
  4. DILTIAZEM [Concomitant]
     Dates: start: 20090714, end: 20090716
  5. LANSOPRAZOLE [Concomitant]
     Dosage: STOP DATE REPORTED AS 23 JULY 2009.
     Dates: start: 20090716
  6. CEFDITOREN PIVOXIL [Concomitant]
     Dosage: STOP DATE REPORTED AS 23 JULY 2009.
     Dates: start: 20090716
  7. AZITHROMYCIN [Concomitant]
     Dosage: STOP DATE REPORTED AS 23 JULY 2009.
     Dates: start: 20090716
  8. AZITHROMYCIN [Concomitant]
     Dates: start: 20090715, end: 20090716
  9. CEFTRIAXONE SODIUM [Concomitant]
     Dates: start: 20090715, end: 20090716
  10. OMEPRAZOLE [Concomitant]
     Dates: start: 20090714, end: 20090714
  11. CHLORPHENIRAMINE MALEATE [Concomitant]
     Dates: start: 20090714, end: 20090715
  12. BENZETHONIUM CHLORIDE [Concomitant]
     Dosage: DRUG REPORTED AS BENZETHONIUM.
     Dates: start: 20090714, end: 20090716

REACTIONS (2)
  - AZOTAEMIA [None]
  - DEATH [None]
